FAERS Safety Report 11839195 (Version 2)
Quarter: 2018Q2

REPORT INFORMATION
  Report Type: Spontaneous
  Country: FR (occurrence: FR)
  Receive Date: 20151216
  Receipt Date: 20180412
  Transmission Date: 20180711
  Serious: Yes (Disabling)
  Sender: FDA-Public Use
  Company Number: FR-ROCHE-1675847

PATIENT
  Age: 74 Year
  Sex: Male

DRUGS (12)
  1. AVASTIN [Suspect]
     Active Substance: BEVACIZUMAB
     Route: 065
     Dates: start: 20150219
  2. ALIMTA [Concomitant]
     Active Substance: PEMETREXED DISODIUM
     Route: 065
     Dates: start: 2013
  3. AVASTIN [Suspect]
     Active Substance: BEVACIZUMAB
     Route: 065
     Dates: start: 20130502
  4. AVASTIN [Suspect]
     Active Substance: BEVACIZUMAB
     Route: 065
     Dates: start: 20140811
  5. AVASTIN [Suspect]
     Active Substance: BEVACIZUMAB
     Route: 065
     Dates: start: 20150312
  6. PERMIXON [Suspect]
     Active Substance: HERBALS\SAW PALMETTO
     Indication: PRODUCT USED FOR UNKNOWN INDICATION
     Route: 048
     Dates: start: 20150219
  7. ALIMTA [Concomitant]
     Active Substance: PEMETREXED DISODIUM
     Route: 065
     Dates: start: 20140811
  8. AVASTIN [Suspect]
     Active Substance: BEVACIZUMAB
     Indication: PRODUCT USED FOR UNKNOWN INDICATION
     Route: 042
     Dates: start: 2013, end: 20150312
  9. ALIMTA [Concomitant]
     Active Substance: PEMETREXED DISODIUM
     Route: 065
     Dates: start: 20130502
  10. CISPLATIN. [Concomitant]
     Active Substance: CISPLATIN
     Route: 065
     Dates: start: 2013
  11. AVASTIN [Suspect]
     Active Substance: BEVACIZUMAB
     Route: 065
     Dates: start: 20140904
  12. HYDROCORTISONE. [Suspect]
     Active Substance: HYDROCORTISONE
     Indication: PRODUCT USED FOR UNKNOWN INDICATION
     Route: 065
     Dates: start: 20150219

REACTIONS (4)
  - Visual acuity reduced [Unknown]
  - Blindness [Unknown]
  - Hypoacusis [Unknown]
  - Visual field defect [Unknown]

NARRATIVE: CASE EVENT DATE: 2015
